FAERS Safety Report 24436261 (Version 3)
Quarter: 2024Q4

REPORT INFORMATION
  Report Type: Spontaneous
  Country: JP (occurrence: JP)
  Receive Date: 20241015
  Receipt Date: 20241031
  Transmission Date: 20250115
  Serious: Yes (Death, Hospitalization, Other)
  Sender: GILEAD
  Company Number: JP-GILEAD-2024-0689460

PATIENT
  Age: 82 Year
  Sex: Female

DRUGS (1)
  1. VEMLIDY [Suspect]
     Active Substance: TENOFOVIR ALAFENAMIDE FUMARATE
     Indication: Acute hepatitis B
     Dosage: 25 MG
     Route: 048
     Dates: start: 20240925

REACTIONS (3)
  - Death [Fatal]
  - Renal impairment [Unknown]
  - Cholestasis [Unknown]

NARRATIVE: CASE EVENT DATE: 20240928
